FAERS Safety Report 11477078 (Version 1)
Quarter: 2015Q3

REPORT INFORMATION
  Report Type: Spontaneous
  Country: US (occurrence: US)
  Receive Date: 20150909
  Receipt Date: 20150909
  Transmission Date: 20151125
  Serious: Yes (Other)
  Sender: FDA-Public Use
  Company Number: US-ASTRAZENECA-2015SE86317

PATIENT
  Age: 982 Month
  Sex: Female
  Weight: 61.7 kg

DRUGS (14)
  1. FISH OIL [Concomitant]
     Active Substance: FISH OIL
  2. LISINOPRIL. [Suspect]
     Active Substance: LISINOPRIL
     Indication: BLOOD PRESSURE ABNORMAL
     Route: 048
  3. PRIMIDONE. [Concomitant]
     Active Substance: PRIMIDONE
     Indication: TREMOR
     Route: 048
  4. ASPIRIN. [Concomitant]
     Active Substance: ASPIRIN
     Indication: PROPHYLAXIS
  5. FUROSIMIDE [Concomitant]
     Active Substance: FUROSEMIDE
     Indication: JOINT SWELLING
  6. GABAPENTIN. [Concomitant]
     Active Substance: GABAPENTIN
     Indication: TREMOR
     Dates: start: 20150810
  7. METOPROLOL SUCCINATE. [Suspect]
     Active Substance: METOPROLOL SUCCINATE
     Indication: BLOOD PRESSURE ABNORMAL
     Route: 048
  8. SYMLIN [Suspect]
     Active Substance: PRAMLINTIDE ACETATE
     Indication: TYPE 2 DIABETES MELLITUS
     Dosage: 1 MG/1.5 ML, 15 UG, EVERY MORNING
     Route: 058
     Dates: start: 20150722
  9. CALTRATE 600 + D + PO [Concomitant]
     Indication: BONE DISORDER
     Dosage: TWO TIMES A DAY
     Route: 048
  10. JANUMET [Concomitant]
     Active Substance: METFORMIN HYDROCHLORIDE\SITAGLIPTIN PHOSPHATE
     Indication: DIABETES MELLITUS
     Dosage: 50/1000 MG, TWO TIMES A DAY
  11. CENTRUM SILVER MULTIVITAMIN [Concomitant]
     Dosage: DAILY
  12. SYMLIN [Suspect]
     Active Substance: PRAMLINTIDE ACETATE
     Indication: TYPE 2 DIABETES MELLITUS
     Dosage: 1 MG/1.5 ML, 30 UG, TWO TIMES A DAY
     Route: 058
     Dates: start: 20150722
  13. HUMALOG QUIKPEN [Concomitant]
     Indication: TYPE 2 DIABETES MELLITUS
  14. ATORVASTATIN [Concomitant]
     Active Substance: ATORVASTATIN
     Indication: BLOOD CHOLESTEROL ABNORMAL

REACTIONS (5)
  - Essential tremor [Unknown]
  - Sedation [Not Recovered/Not Resolved]
  - Fatigue [Not Recovered/Not Resolved]
  - Aortic valve stenosis [Unknown]
  - Blood glucose increased [Unknown]

NARRATIVE: CASE EVENT DATE: 201505
